FAERS Safety Report 25644021 (Version 1)
Quarter: 2025Q3

REPORT INFORMATION
  Report Type: Spontaneous
  Country: EU (occurrence: EU)
  Receive Date: 20250805
  Receipt Date: 20250805
  Transmission Date: 20251020
  Serious: Yes (Congenital Anomaly)
  Sender: RANBAXY
  Company Number: EU-EMB-M201811678-1

PATIENT
  Sex: Female
  Weight: 3.55 kg

DRUGS (2)
  1. OLANZAPINE [Suspect]
     Active Substance: OLANZAPINE
     Indication: Psychotic disorder
     Dosage: SINCE 2013
     Route: 064
     Dates: start: 201809, end: 201905
  2. PROGESTERONE [Suspect]
     Active Substance: PROGESTERONE
     Indication: Prophylaxis of abortion
     Dosage: APPLICATION POSSIBLY LONGER
     Route: 064
     Dates: start: 201809, end: 201811

REACTIONS (2)
  - Atrial septal defect [Unknown]
  - Foetal exposure during pregnancy [Unknown]
